FAERS Safety Report 15411009 (Version 2)
Quarter: 2018Q4

REPORT INFORMATION
  Report Type: Spontaneous
  Country: IN (occurrence: IN)
  Receive Date: 20180921
  Receipt Date: 20181001
  Transmission Date: 20190204
  Serious: Yes (Hospitalization, Other)
  Sender: FDA-Public Use
  Company Number: IN-DRREDDYS-USA/IND/18/0104024

PATIENT
  Age: 66 Year
  Sex: Female

DRUGS (3)
  1. CLOPIDOGREL [Suspect]
     Active Substance: CLOPIDOGREL BISULFATE
     Indication: ANTIPLATELET THERAPY
     Route: 065
  2. ACETYLSALICYLIC ACID [Suspect]
     Active Substance: ASPIRIN
     Indication: ANTIPLATELET THERAPY
     Route: 065
  3. SEVELAMER CARBONATE 800 MG [Suspect]
     Active Substance: SEVELAMER CARBONATE
     Indication: HYPERPHOSPHATAEMIA
     Dosage: WITH FOOD
     Route: 065

REACTIONS (16)
  - Haemoglobin decreased [Recovered/Resolved]
  - Fall [Unknown]
  - Hypocalcaemia [Unknown]
  - Melaena [Recovered/Resolved]
  - Gastritis erosive [Recovered/Resolved]
  - Limb injury [Unknown]
  - Mucosal ulceration [Unknown]
  - Blood parathyroid hormone increased [Unknown]
  - Condition aggravated [Recovered/Resolved]
  - Oedema peripheral [Unknown]
  - Radius fracture [Unknown]
  - Duodenal ulcer [Recovered/Resolved]
  - Gastrointestinal haemorrhage [Recovered/Resolved]
  - Back injury [Unknown]
  - Thoracic vertebral fracture [Unknown]
  - Hyperphosphataemia [Unknown]
